FAERS Safety Report 5442977-1 (Version None)
Quarter: 2007Q3

REPORT INFORMATION
  Report Type: 
  Country: None (occurrence: None)
  Receive Date: 20070905
  Receipt Date: 20070828
  Transmission Date: 20080115
  Serious: Yes (Other)
  Sender: FDA-Public Use
  Company Number: GBWYE229728AUG07

PATIENT
  Age: 33 Year
  Sex: Male
  Weight: 82 kg

DRUGS (2)
  1. VENLAFAXIINE HCL [Suspect]
     Indication: DEPRESSION
     Route: 048
     Dates: start: 20070611, end: 20070611
  2. DOSULEPIN [Concomitant]
     Indication: ANXIETY
     Dosage: 75MG, FREQUENCY NOT STATED
     Route: 048
     Dates: start: 20060101, end: 20070611

REACTIONS (4)
  - CHILLS [None]
  - CONDITION AGGRAVATED [None]
  - PANIC ATTACK [None]
  - PYREXIA [None]
